FAERS Safety Report 8225398-8 (Version None)
Quarter: 2012Q1

REPORT INFORMATION
  Report Type: 
  Country: None (occurrence: None)
  Receive Date: 20120321
  Receipt Date: 20120308
  Transmission Date: 20120608
  Serious: Yes (Hospitalization)
  Sender: FDA-Public Use
  Company Number: DE-SANOFI-AVENTIS-2012SA000191

PATIENT
  Age: 48 Year
  Sex: Female
  Weight: 87.8 kg

DRUGS (4)
  1. CYCLOPHOSPHAMIDE [Suspect]
     Route: 041
     Dates: start: 20110804, end: 20110804
  2. DOCETAXEL [Suspect]
     Route: 041
     Dates: start: 20110804, end: 20110804
  3. DOCETAXEL [Suspect]
     Indication: BREAST CANCER
     Route: 041
     Dates: start: 20110421, end: 20110421
  4. CYCLOPHOSPHAMIDE [Suspect]
     Indication: BREAST CANCER
     Route: 041
     Dates: start: 20110421, end: 20110421

REACTIONS (2)
  - RENAL PAIN [None]
  - HYDRONEPHROSIS [None]
